FAERS Safety Report 9030659 (Version 2)
Quarter: 2013Q1

REPORT INFORMATION
  Report Type: Report from Study
  Country: HR (occurrence: HR)
  Receive Date: 20130123
  Receipt Date: 20130313
  Transmission Date: 20140127
  Serious: No
  Sender: FDA-Public Use
  Company Number: HR-VERTEX PHARMACEUTICALS INC.-2013-001002

PATIENT
  Age: 20 Year
  Sex: Male
  Weight: 70 kg

DRUGS (6)
  1. VX-950 (TELAPREVIR) [Suspect]
     Indication: HEPATITIS C
     Dosage: 750 MG, TID
     Route: 065
     Dates: start: 20121029, end: 20130109
  2. PEGINTERFERON ALFA-2A [Concomitant]
     Indication: CHRONIC HEPATITIS C
     Dosage: 1000 MG, QW
     Route: 065
  3. PEGINTERFERON ALFA-2A [Concomitant]
     Route: 065
     Dates: start: 20121028
  4. PEGINTERFERON ALFA-2A [Concomitant]
     Route: 058
     Dates: start: 20121029
  5. RIBAVIRIN [Concomitant]
     Indication: CHRONIC HEPATITIS C
     Dosage: 800 MG, QD
     Route: 065
  6. RIBAVIRIN [Concomitant]
     Dosage: DOSAGE FORM: CAPSULES
     Route: 048
     Dates: start: 20121029

REACTIONS (2)
  - Rash [Recovered/Resolved]
  - Rash maculo-papular [None]
